FAERS Safety Report 5198491-4 (Version None)
Quarter: 2007Q1

REPORT INFORMATION
  Report Type: 
  Country: None (occurrence: None)
  Receive Date: 20070104
  Receipt Date: 20061221
  Transmission Date: 20070707
  Serious: Yes (Other)
  Sender: FDA-Public Use
  Company Number: GSK948

PATIENT
  Age: 17 Year
  Sex: Female

DRUGS (5)
  1. SOLPADEINE [Suspect]
     Indication: DRUG USE FOR UNKNOWN INDICATION
     Route: 048
  2. ANTACID TAB [Suspect]
  3. ASPIRIN + CAFFEINE [Suspect]
  4. CAFFEINE [Suspect]
  5. UNSPECIFIED DRUG [Suspect]

REACTIONS (4)
  - DIZZINESS [None]
  - HEART RATE INCREASED [None]
  - INTENTIONAL OVERDOSE [None]
  - NAUSEA [None]
